FAERS Safety Report 15479005 (Version 2)
Quarter: 2018Q4

REPORT INFORMATION
  Report Type: Report from Study
  Country: GB (occurrence: GB)
  Receive Date: 20181009
  Receipt Date: 20181029
  Transmission Date: 20190205
  Serious: Yes (Hospitalization, Other)
  Sender: FDA-Public Use
  Company Number: GB-JNJFOC-20181000546

PATIENT
  Age: 62 Year
  Sex: Female

DRUGS (1)
  1. STELARA [Suspect]
     Active Substance: USTEKINUMAB
     Indication: PSORIASIS
     Route: 058
     Dates: start: 20160810

REACTIONS (4)
  - Neoplasm malignant [Recovered/Resolved]
  - Hysterectomy [Recovered/Resolved]
  - Syncope [Unknown]
  - Ankle fracture [Unknown]

NARRATIVE: CASE EVENT DATE: 20180717
